FAERS Safety Report 7720694-2 (Version None)
Quarter: 2011Q3

REPORT INFORMATION
  Report Type: 
  Country: None (occurrence: None)
  Receive Date: 20110831
  Receipt Date: 20110825
  Transmission Date: 20111222
  Serious: Yes (Death)
  Sender: FDA-Public Use
  Company Number: PHHY2011JP69121

PATIENT
  Sex: Male
  Weight: 56 kg

DRUGS (6)
  1. SPELEAR [Concomitant]
     Dosage: 800 MG, UNK
     Route: 048
  2. URITOS [Concomitant]
     Dosage: 6.2 MG, UNK
     Route: 048
  3. FAMOTIDINE [Concomitant]
     Dosage: 20 MG, UNK
     Route: 048
  4. NATEGLINIDE [Concomitant]
     Dosage: 180 MG, UNK
     Route: 048
  5. AMLODIPINE BESYLATE/VALSARTAN [Suspect]
     Indication: HYPERTENSION
     Dosage: 80 MG VALS AND 5 MG AMLO, DAILY
     Route: 048
     Dates: start: 20100706
  6. DEPAS [Concomitant]
     Dosage: 1 MG, UNK

REACTIONS (1)
  - MYOCARDIAL INFARCTION [None]
